FAERS Safety Report 4300760-4 (Version None)
Quarter: 2004Q1

REPORT INFORMATION
  Report Type: 
  Country: None (occurrence: None)
  Receive Date: 20040217
  Receipt Date: 20040203
  Transmission Date: 20041129
  Serious: Yes (Hospitalization)
  Sender: FDA-Public Use
  Company Number: 2004SE00547

PATIENT
  Age: 57 Year
  Sex: Male
  Weight: 65 kg

DRUGS (4)
  1. BLOPRESS [Suspect]
     Indication: HYPERTENSION
     Dosage: 8 MG QD PO
     Route: 048
     Dates: start: 20030509, end: 20030613
  2. SORTIS [Concomitant]
  3. COVERSUM [Concomitant]
  4. CALCIUM ACETATE [Concomitant]

REACTIONS (2)
  - DEHYDRATION [None]
  - RENAL IMPAIRMENT [None]
